FAERS Safety Report 7278298-4 (Version None)
Quarter: 2010Q4

REPORT INFORMATION
  Report Type: 
  Country: None (occurrence: None)
  Receive Date: 20101206
  Receipt Date: 20101020
  Transmission Date: 20110411
  Serious: Yes (Other)
  Sender: FDA-Public Use
  Company Number: 2010SP056139

PATIENT
  Age: 50 Year
  Sex: Female

DRUGS (5)
  1. SAPHRIS [Suspect]
     Indication: BIPOLAR DISORDER
     Dosage: 10 MG;BID;SL
     Route: 060
     Dates: start: 20101014
  2. SEROQUEL [Concomitant]
  3. LAMICTAL [Concomitant]
  4. LEXAPRO [Concomitant]
  5. VISTARIL [Concomitant]

REACTIONS (5)
  - AFFECT LABILITY [None]
  - AGITATION [None]
  - DROOLING [None]
  - GLOSSODYNIA [None]
  - MANIA [None]
